FAERS Safety Report 12599749 (Version 1)
Quarter: 2016Q3

REPORT INFORMATION
  Report Type: Spontaneous
  Country: US (occurrence: US)
  Receive Date: 20160727
  Receipt Date: 20160727
  Transmission Date: 20161109
  Serious: No
  Sender: FDA-Public Use
  Company Number: US-AKRIMAX-TIR-2016-0514

PATIENT
  Age: 64 Year
  Sex: Female

DRUGS (4)
  1. TIROSINT [Suspect]
     Active Substance: LEVOTHYROXINE SODIUM
     Indication: THYROIDECTOMY
  2. TIROSINT [Suspect]
     Active Substance: LEVOTHYROXINE SODIUM
     Indication: HYPOTHYROIDISM
     Dosage: 112MCG ONCE DAILY TWO DAYS IN A ROW, 125MCG ON THE THIRD DAY, AND THEN ALTERNATING THE DOSES FOR THE
     Route: 048
     Dates: start: 2012
  3. TIROSINT [Suspect]
     Active Substance: LEVOTHYROXINE SODIUM
     Indication: HYPOTHYROIDISM
     Dosage: 112MCG ONCE DAILY TWO DAYS IN A ROW, 125MCG ON THE THIRD DAY, AND THEN ALTERNATING THE DOSES FOR THE
     Route: 048
     Dates: start: 2012
  4. TIROSINT [Suspect]
     Active Substance: LEVOTHYROXINE SODIUM
     Indication: THYROIDECTOMY

REACTIONS (1)
  - Abdominal discomfort [Unknown]
